FAERS Safety Report 8332771-6 (Version None)
Quarter: 2012Q2

REPORT INFORMATION
  Report Type: 
  Country: None (occurrence: None)
  Receive Date: 20120503
  Receipt Date: 20120425
  Transmission Date: 20120825
  Serious: Yes (Other)
  Sender: FDA-Public Use
  Company Number: US-US-EMD SERONO, INC.-7128600

PATIENT
  Sex: Female

DRUGS (6)
  1. REBIF [Suspect]
     Indication: MULTIPLE SCLEROSIS
     Dates: start: 20120316
  2. REBIF [Suspect]
     Route: 058
  3. BENADRYL [Concomitant]
     Indication: PREMEDICATION
  4. REBIF [Suspect]
  5. TYLENOL (CAPLET) [Concomitant]
     Indication: PREMEDICATION
  6. HUMIRA [Concomitant]
     Indication: CROHN'S DISEASE
     Dates: start: 20110801

REACTIONS (4)
  - CROHN'S DISEASE [None]
  - INFLUENZA LIKE ILLNESS [None]
  - INJECTION SITE REACTION [None]
  - SLEEP DISORDER [None]
